FAERS Safety Report 14981587 (Version 2)
Quarter: 2018Q4

REPORT INFORMATION
  Report Type: Spontaneous
  Country: JP (occurrence: JP)
  Receive Date: 20180607
  Receipt Date: 20181221
  Transmission Date: 20190204
  Serious: Yes (Other)
  Sender: FDA-Public Use
  Company Number: PHJP2018JP012082

PATIENT
  Age: 70 Year
  Sex: Male

DRUGS (1)
  1. VOTRIENT [Suspect]
     Active Substance: PAZOPANIB HYDROCHLORIDE
     Indication: RENAL CELL CARCINOMA
     Dosage: UNK
     Route: 048

REACTIONS (5)
  - Pancreatic mass [Unknown]
  - Concomitant disease aggravated [Unknown]
  - Jaundice cholestatic [Unknown]
  - Renal cell carcinoma [Unknown]
  - Malignant neoplasm progression [Unknown]
